FAERS Safety Report 16617471 (Version 2)
Quarter: 2019Q3

REPORT INFORMATION
  Report Type: Spontaneous
  Country: JP (occurrence: JP)
  Receive Date: 20190723
  Receipt Date: 20190912
  Transmission Date: 20191004
  Serious: Yes (Hospitalization, Other)
  Sender: FDA-Public Use
  Company Number: JP-MACLEODS PHARMACEUTICALS US LTD-MAC2019022176

PATIENT

DRUGS (7)
  1. QUETIAPINE. [Suspect]
     Active Substance: QUETIAPINE
     Dosage: 25 MILLIGRAM
     Route: 065
     Dates: start: 201708
  2. QUETIAPINE. [Suspect]
     Active Substance: QUETIAPINE
     Indication: DELIRIUM
     Dosage: 12.5 MILLIGRAM, STARTED FROM THE END OF JULY AND INCREASED TO 25 MG FROM THE BEGINNING OF AUGUST
     Route: 065
     Dates: start: 201707, end: 201708
  3. MIANSERIN [Concomitant]
     Active Substance: MIANSERIN
     Indication: DEPRESSION
     Dosage: UNK
     Route: 065
  4. PAROXETINE. [Concomitant]
     Active Substance: PAROXETINE
     Indication: DEPRESSION
     Dosage: UNK
     Route: 065
  5. RAMELTEON [Concomitant]
     Active Substance: RAMELTEON
     Indication: DEPRESSION
     Dosage: UNK
     Route: 065
  6. TIAPRIDE [Concomitant]
     Active Substance: TIAPRIDE
     Indication: DEPRESSION
     Dosage: UNK
     Route: 065
  7. SUVOREXANT. [Concomitant]
     Active Substance: SUVOREXANT
     Indication: DEPRESSION
     Dosage: UNK
     Route: 065

REACTIONS (13)
  - Emphysema [Recovered/Resolved]
  - Adrenomegaly [Recovered/Resolved]
  - Diabetic ketoacidosis [Recovered/Resolved]
  - Diabetes mellitus [Recovered/Resolved]
  - Gastrointestinal necrosis [Recovered/Resolved]
  - Intestinal ischaemia [Recovered/Resolved]
  - Pancreatic enzymes increased [Recovered/Resolved]
  - Fall [Recovered/Resolved]
  - Ischaemic enteritis [Recovered/Resolved]
  - Renal impairment [Recovered/Resolved]
  - Blood potassium increased [Recovered/Resolved]
  - Blood phosphorus increased [Recovered/Resolved]
  - Blood pressure diastolic decreased [Recovered/Resolved]
